FAERS Safety Report 6955766-3 (Version None)
Quarter: 2010Q3

REPORT INFORMATION
  Report Type: 
  Country: None (occurrence: None)
  Receive Date: 20100826
  Receipt Date: 20100826
  Transmission Date: 20110219
  Serious: Yes (Life-Threatening)
  Sender: FDA-Public Use
  Company Number: None

PATIENT
  Age: 30 Year
  Sex: Female
  Weight: 61.2356 kg

DRUGS (3)
  1. LOESTRIN 21 1/20 [Suspect]
     Indication: HEADACHE
     Dosage: 1 DAY PO
     Route: 048
     Dates: start: 20100715, end: 20100820
  2. LOESTRIN 21 1/20 [Suspect]
     Indication: MENSTRUATION IRREGULAR
     Dosage: 1 DAY PO
     Route: 048
     Dates: start: 20100715, end: 20100820
  3. LOESTRIN 21 1/20 [Suspect]
     Indication: MIGRAINE
     Dosage: 1 DAY PO
     Route: 048
     Dates: start: 20100715, end: 20100820

REACTIONS (4)
  - CRYING [None]
  - DEPRESSED MOOD [None]
  - HYPOPHAGIA [None]
  - MOBILITY DECREASED [None]
